FAERS Safety Report 9454182 (Version 1)
Quarter: 2013Q3

REPORT INFORMATION
  Report Type: Spontaneous
  Country: US (occurrence: US)
  Receive Date: 20130812
  Receipt Date: 20130812
  Transmission Date: 20140515
  Serious: Yes (Hospitalization)
  Sender: FDA-Public Use
  Company Number: US-ACTELION-A-US2013-86736

PATIENT
  Age: 49 Year
  Sex: Male

DRUGS (4)
  1. TRACLEER [Suspect]
     Indication: PULMONARY ARTERIAL HYPERTENSION
     Dosage: UNK
     Route: 048
  2. SILDENAFIL [Concomitant]
  3. REMODULIN [Suspect]
  4. ASA [Concomitant]

REACTIONS (4)
  - Pain in extremity [Recovering/Resolving]
  - Local swelling [Recovering/Resolving]
  - Catheter site swelling [Recovering/Resolving]
  - Erythema [None]
